FAERS Safety Report 17806171 (Version 1)
Quarter: 2020Q2

REPORT INFORMATION
  Report Type: Report from Study
  Country: CN (occurrence: CN)
  Receive Date: 20200520
  Receipt Date: 20200520
  Transmission Date: 20200714
  Serious: Yes (Other)
  Sender: FDA-Public Use
  Company Number: CN-ROCHE-2604365

PATIENT

DRUGS (5)
  1. ALTEPLASE. [Suspect]
     Active Substance: ALTEPLASE
     Indication: CEREBRAL INFARCTION
     Dosage: 10% WITH 10ML NS IV PUSH
     Route: 042
  2. ASPIRIN [ACETYLSALICYLIC ACID] [Concomitant]
     Active Substance: ASPIRIN
  3. OZAGREL SODIUM [Concomitant]
     Active Substance: OZAGREL SODIUM
     Route: 042
  4. ARGATROBAN. [Concomitant]
     Active Substance: ARGATROBAN
     Indication: CEREBRAL INFARCTION
     Route: 042
  5. ARGATROBAN. [Concomitant]
     Active Substance: ARGATROBAN
     Route: 065

REACTIONS (1)
  - Drug ineffective [Unknown]
